FAERS Safety Report 10207713 (Version 1)
Quarter: 2014Q2

REPORT INFORMATION
  Report Type: Spontaneous
  Country: US (occurrence: None)
  Receive Date: 20140527
  Receipt Date: 20140527
  Transmission Date: 20141212
  Serious: No
  Sender: FDA-Public Use
  Company Number: None

PATIENT
  Age: 75 Year
  Sex: Male

DRUGS (3)
  1. BACTRIM [Suspect]
     Indication: ARTHRITIS INFECTIVE
     Dates: start: 20121205, end: 20121219
  2. ETODOLAC [Concomitant]
  3. LISINOPRIL [Concomitant]

REACTIONS (9)
  - Drug-induced liver injury [None]
  - Blood bilirubin increased [None]
  - Fatigue [None]
  - Pruritus [None]
  - Photophobia [None]
  - Aspartate aminotransferase increased [None]
  - Alanine aminotransferase increased [None]
  - Blood alkaline phosphatase [None]
  - Bilirubin conjugated increased [None]
